FAERS Safety Report 23158227 (Version 2)
Quarter: 2023Q4

REPORT INFORMATION
  Report Type: Report from Study
  Country: US (occurrence: US)
  Receive Date: 20231108
  Receipt Date: 20231227
  Transmission Date: 20240110
  Serious: Yes (Other)
  Sender: FDA-Public Use
  Company Number: US-ABBVIE-5483923

PATIENT
  Sex: Female

DRUGS (4)
  1. SKYRIZI [Suspect]
     Active Substance: RISANKIZUMAB-RZAA
     Indication: Crohn^s disease
     Route: 058
     Dates: start: 20230919, end: 20231114
  2. SKYRIZI [Suspect]
     Active Substance: RISANKIZUMAB-RZAA
     Indication: Crohn^s disease
     Route: 042
     Dates: start: 20230622, end: 20230622
  3. SKYRIZI [Suspect]
     Active Substance: RISANKIZUMAB-RZAA
     Indication: Crohn^s disease
     Route: 042
     Dates: start: 20230721, end: 20230721
  4. SKYRIZI [Suspect]
     Active Substance: RISANKIZUMAB-RZAA
     Indication: Crohn^s disease
     Route: 042
     Dates: start: 20230822, end: 20230822

REACTIONS (13)
  - Rectal ulcer haemorrhage [Recovering/Resolving]
  - Crohn^s disease [Recovering/Resolving]
  - Influenza [Recovering/Resolving]
  - White blood cell count increased [Not Recovered/Not Resolved]
  - Sinusitis [Not Recovered/Not Resolved]
  - Abdominal wall infection [Unknown]
  - Gastritis [Unknown]
  - Gastritis hypertrophic [Unknown]
  - Colitis [Unknown]
  - Proctitis [Unknown]
  - Nasopharyngitis [Recovering/Resolving]
  - Ulcer haemorrhage [Recovering/Resolving]
  - Frequent bowel movements [Unknown]

NARRATIVE: CASE EVENT DATE: 20230101
